FAERS Safety Report 25151446 (Version 4)
Quarter: 2025Q2

REPORT INFORMATION
  Report Type: Spontaneous
  Country: US (occurrence: US)
  Receive Date: 20250402
  Receipt Date: 20250425
  Transmission Date: 20250717
  Serious: Yes (Other)
  Sender: ABBVIE
  Company Number: US-ABBVIE-6201768

PATIENT
  Age: 42 Year
  Sex: Female

DRUGS (2)
  1. QULIPTA [Suspect]
     Active Substance: ATOGEPANT
     Indication: Migraine prophylaxis
     Route: 048
     Dates: end: 202503
  2. UBRELVY [Suspect]
     Active Substance: UBROGEPANT
     Indication: Migraine prophylaxis
     Route: 048
     Dates: end: 202503

REACTIONS (4)
  - Spinal operation [Unknown]
  - Drug interaction [Unknown]
  - Migraine [Unknown]
  - Epidural injection [Unknown]

NARRATIVE: CASE EVENT DATE: 20250213
